FAERS Safety Report 10066163 (Version 2)
Quarter: 2014Q2

REPORT INFORMATION
  Report Type: Spontaneous
  Country: US (occurrence: US)
  Receive Date: 20140408
  Receipt Date: 20140418
  Transmission Date: 20141212
  Serious: Yes (Other)
  Sender: FDA-Public Use
  Company Number: US-PFIZER INC-2014097108

PATIENT
  Age: 47 Year
  Sex: Male
  Weight: 82.54 kg

DRUGS (3)
  1. DEPO-TESTOSTERONE [Suspect]
     Indication: BLOOD TESTOSTERONE DECREASED
     Dosage: 200 MG, ONCE EVERY TWO WEEK
     Dates: start: 201403
  2. NAPHCON-A [Concomitant]
     Indication: EYE IRRITATION
     Dosage: UNK
     Route: 047
  3. NIACIN [Concomitant]
     Dosage: UNK

REACTIONS (5)
  - Choking [Recovering/Resolving]
  - Hypersensitivity [Recovering/Resolving]
  - Secretion discharge [Recovering/Resolving]
  - Increased upper airway secretion [Recovering/Resolving]
  - Rhinorrhoea [Recovering/Resolving]
